FAERS Safety Report 7810994-X (Version None)
Quarter: 2011Q4

REPORT INFORMATION
  Report Type: 
  Country: None (occurrence: None)
  Receive Date: 20111013
  Receipt Date: 20111006
  Transmission Date: 20120403
  Serious: Yes (Hospitalization)
  Sender: FDA-Public Use
  Company Number: US-AMGEN-USACT2011046594

PATIENT
  Age: 63 Year
  Sex: Female

DRUGS (2)
  1. CISPLATIN [Concomitant]
     Indication: HEAD AND NECK CANCER
     Dosage: 30 MG/M2, QWK
     Route: 042
     Dates: start: 20110804
  2. PANITUMUMAB [Suspect]
     Indication: HEAD AND NECK CANCER
     Dosage: 2.5 MG/KG, QWK
     Route: 042
     Dates: start: 20110804, end: 20110915

REACTIONS (2)
  - NAUSEA [None]
  - PAIN [None]
